FAERS Safety Report 23891581 (Version 1)
Quarter: 2024Q2

REPORT INFORMATION
  Report Type: Spontaneous
  Country: US (occurrence: US)
  Receive Date: 20240524
  Receipt Date: 20240524
  Transmission Date: 20240716
  Serious: No
  Sender: FDA-Public Use
  Company Number: US-ChurchDwight-2024-CDW-00815

PATIENT
  Age: 22 Year
  Sex: Male

DRUGS (1)
  1. ORAJEL 3X MEDICATED FOR TOOTHACHE AND GUM [Suspect]
     Active Substance: BENZOCAINE\MENTHOL\ZINC CHLORIDE
     Indication: Toothache
     Route: 061

REACTIONS (5)
  - Dizziness [Not Recovered/Not Resolved]
  - Feeling abnormal [Not Recovered/Not Resolved]
  - Asthenia [Not Recovered/Not Resolved]
  - Pain [Not Recovered/Not Resolved]
  - Drug effect less than expected [Unknown]
